FAERS Safety Report 10219483 (Version 1)
Quarter: 2014Q2

REPORT INFORMATION
  Report Type: Spontaneous
  Country: US (occurrence: None)
  Receive Date: 20140604
  Receipt Date: 20140604
  Transmission Date: 20141212
  Serious: Yes (Other)
  Sender: FDA-Public Use
  Company Number: None

PATIENT
  Age: 59 Year
  Sex: Male

DRUGS (1)
  1. VALSARTAN/HCTZ 160/25MG QUALITEST [Suspect]
     Indication: HYPERTENSION
     Dosage: 1 PILL, QD, ORAL
     Route: 048
     Dates: start: 20140529, end: 20140602

REACTIONS (4)
  - Blood pressure increased [None]
  - Headache [None]
  - Ocular discomfort [None]
  - Product substitution issue [None]
